FAERS Safety Report 20753099 (Version 1)
Quarter: 2022Q2

REPORT INFORMATION
  Report Type: Spontaneous
  Country: US (occurrence: None)
  Receive Date: 20220426
  Receipt Date: 20220426
  Transmission Date: 20220721
  Serious: No
  Sender: FDA-Public Use
  Company Number: US-ROCHE-3002350

PATIENT
  Sex: Male

DRUGS (1)
  1. ESBRIET [Suspect]
     Active Substance: PIRFENIDONE
     Indication: Idiopathic pulmonary fibrosis
     Dosage: 267 MG TABLETS,1 TABLET TO BE TAKEN BY MOUTH 3 TIMES A DAY FOR 7 DAYS THEN  2 TABLETS TO BE TAKEN BY
     Route: 048

REACTIONS (1)
  - Malaise [Recovered/Resolved]
